FAERS Safety Report 5385674-3 (Version None)
Quarter: 2007Q3

REPORT INFORMATION
  Report Type: 
  Country: None (occurrence: None)
  Receive Date: 20070712
  Receipt Date: 20070702
  Transmission Date: 20080115
  Serious: Yes (Other)
  Sender: FDA-Public Use
  Company Number: AU-PFIZER INC-2007054856

PATIENT
  Age: 60 Year
  Sex: Female

DRUGS (4)
  1. LIPITOR [Suspect]
  2. FISH OIL [Concomitant]
  3. MULTIVITAMIN [Concomitant]
  4. IBILEX [Concomitant]

REACTIONS (5)
  - HEADACHE [None]
  - MYALGIA [None]
  - PARAESTHESIA [None]
  - THROMBOSIS [None]
  - URINARY TRACT INFECTION [None]
